FAERS Safety Report 20951744 (Version 1)
Quarter: 2022Q2

REPORT INFORMATION
  Report Type: Spontaneous
  Country: US (occurrence: None)
  Receive Date: 20220611
  Receipt Date: 20220611
  Transmission Date: 20220721
  Serious: No
  Sender: FDA-Public Use
  Company Number: None

PATIENT
  Age: 78 Year
  Sex: Male

DRUGS (2)
  1. ICY HOT LIDOCAINE NO-MESS [Suspect]
     Active Substance: LIDOCAINE HYDROCHLORIDE
  2. UNSPECIFIED INGREDIENT [Concomitant]
     Active Substance: UNSPECIFIED INGREDIENT

REACTIONS (5)
  - Urticaria [None]
  - Skin reaction [None]
  - Rash [None]
  - Swelling [None]
  - Hypersensitivity [None]

NARRATIVE: CASE EVENT DATE: 20220608
